FAERS Safety Report 16734867 (Version 1)
Quarter: 2019Q3

REPORT INFORMATION
  Report Type: Spontaneous
  Country: US (occurrence: US)
  Receive Date: 20190823
  Receipt Date: 20190823
  Transmission Date: 20191005
  Serious: No
  Sender: FDA-Public Use
  Company Number: US-ASTRAZENECA-2019SF16364

PATIENT
  Sex: Male

DRUGS (2)
  1. SEROQUEL [Suspect]
     Active Substance: QUETIAPINE FUMARATE
     Indication: BIPOLAR DISORDER
     Dosage: 175 MG DAILY
     Route: 048
  2. SEROQUEL [Suspect]
     Active Substance: QUETIAPINE FUMARATE
     Indication: BIPOLAR DISORDER
     Dosage: 800 MG DAILY
     Route: 048

REACTIONS (6)
  - Fatigue [Unknown]
  - Weight decreased [Unknown]
  - Drug ineffective [Unknown]
  - Hypotension [Unknown]
  - Weight increased [Unknown]
  - Malaise [Unknown]
